FAERS Safety Report 24104747 (Version 6)
Quarter: 2024Q3

REPORT INFORMATION
  Report Type: Spontaneous
  Country: CA (occurrence: CA)
  Receive Date: 20240717
  Receipt Date: 20240913
  Transmission Date: 20241016
  Serious: Yes (Hospitalization, Other)
  Sender: CELLTRION
  Company Number: CA-PFIZER INC-202400135791

PATIENT

DRUGS (17)
  1. INFLECTRA [Suspect]
     Active Substance: INFLIXIMAB-DYYB
     Indication: Crohn^s disease
     Dosage: 5 MG/KG, W 0, 2, 6 WEEKS THEN EVERY 8 WEEKS
     Route: 042
     Dates: start: 20231207
  2. INFLECTRA [Suspect]
     Active Substance: INFLIXIMAB-DYYB
     Dosage: 5 MG/KG, W 0, 2, 6 WEEKS THEN EVERY 8 WEEKS
     Route: 042
     Dates: start: 20240509
  3. INFLECTRA [Suspect]
     Active Substance: INFLIXIMAB-DYYB
     Dosage: 5 MG/KG, W 0, 2, 6 WEEKS THEN EVERY 8 WEEKS
     Route: 042
     Dates: start: 20240509
  4. INFLECTRA [Suspect]
     Active Substance: INFLIXIMAB-DYYB
     Dosage: 450 MG, 8 WEEKS AND 1 DAY (5 MG/KG, W 0, 2, 6 WEEKS THEN EVERY 8 WEEKS)
     Route: 042
     Dates: start: 20240705
  5. ASPIRIN [Concomitant]
     Active Substance: ASPIRIN
     Dosage: 81 MG, FREQUENCY UNKNOWN
     Route: 048
     Dates: start: 202311
  6. ALFUZOSIN [Concomitant]
     Active Substance: ALFUZOSIN
     Dosage: 10 MG
  7. ALLOPURINOL [Concomitant]
     Active Substance: ALLOPURINOL
     Dosage: 300 MG
  8. VITAMIN B12 [Concomitant]
     Active Substance: CYANOCOBALAMIN
     Dosage: 1000 UG (MCG)
  9. CANDESARTAN [Concomitant]
     Active Substance: CANDESARTAN
     Dosage: 16 MG
  10. COLCHICINE [Concomitant]
     Active Substance: COLCHICINE
     Dosage: 0.6 MG
  11. CITALOPRAM [Concomitant]
     Active Substance: CITALOPRAM\CITALOPRAM HYDROBROMIDE
     Dosage: 40 MG
  12. PANTOPRAZOLE [Concomitant]
     Active Substance: PANTOPRAZOLE
     Dosage: 40 MG, FREQUENCY UNKNOWN
     Route: 048
     Dates: start: 202311
  13. PREDNISONE [Concomitant]
     Active Substance: PREDNISONE
     Dosage: UNK
  14. PREDNISONE [Concomitant]
     Active Substance: PREDNISONE
     Dosage: UNK
  15. SUCRALFATE [Concomitant]
     Active Substance: SUCRALFATE
     Dosage: 1 DF
     Dates: start: 202311
  16. FERROUS SULFATE [Concomitant]
     Active Substance: FERROUS SULFATE
     Dosage: 300 MG
  17. ZOPICLONE [Concomitant]
     Active Substance: ZOPICLONE
     Dosage: 7.5 MG

REACTIONS (6)
  - Condition aggravated [Recovering/Resolving]
  - Vomiting [Recovering/Resolving]
  - Abdominal distension [Not Recovered/Not Resolved]
  - Flatulence [Not Recovered/Not Resolved]
  - Gastroenteritis viral [Not Recovered/Not Resolved]
  - Nausea [Unknown]

NARRATIVE: CASE EVENT DATE: 20240101
